FAERS Safety Report 7494861-X (Version None)
Quarter: 2011Q2

REPORT INFORMATION
  Report Type: 
  Country: None (occurrence: None)
  Receive Date: 20110520
  Receipt Date: 20110511
  Transmission Date: 20111010
  Serious: Yes (Hospitalization, Disabling)
  Sender: FDA-Public Use
  Company Number: DK-GENENTECH-317981

PATIENT
  Sex: Male
  Weight: 69 kg

DRUGS (12)
  1. G-CSF [Suspect]
     Dosage: 6 MG, UNK
     Route: 058
     Dates: start: 20110429
  2. CYCLOPHOSPHAMIDE [Suspect]
     Indication: DIFFUSE LARGE B-CELL LYMPHOMA
     Dosage: 1394 MG, UNK
     Route: 042
     Dates: start: 20110405
  3. DOXORUBICIN HCL [Suspect]
     Indication: DIFFUSE LARGE B-CELL LYMPHOMA
     Dosage: 93 MG, UNK
     Route: 042
     Dates: start: 20110405
  4. DOXORUBICIN HCL [Suspect]
     Dosage: 95 MG, UNK
     Route: 042
     Dates: start: 20110428
  5. PREDNISONE [Suspect]
     Dosage: 100 MG, UNK
     Route: 048
     Dates: start: 20110428
  6. RITUXIMAB [Suspect]
     Indication: DIFFUSE LARGE B-CELL LYMPHOMA
     Dosage: 700 MG, UNK
     Route: 042
     Dates: start: 20110405
  7. PREDNISONE [Suspect]
     Indication: DIFFUSE LARGE B-CELL LYMPHOMA
     Dosage: 100 MG, UNK
     Route: 048
     Dates: start: 20110405
  8. CYCLOPHOSPHAMIDE [Suspect]
     Dosage: 1425 MG, UNK
     Route: 042
     Dates: start: 20110428
  9. VINCRISTINE [Suspect]
     Indication: DIFFUSE LARGE B-CELL LYMPHOMA
     Dosage: 2 MG, UNK
     Route: 042
     Dates: start: 20110405
  10. VINBLASTINE SULFATE [Suspect]
     Indication: DIFFUSE LARGE B-CELL LYMPHOMA
     Dosage: 11.4 MG, UNK
     Route: 042
     Dates: start: 20110428
  11. RITUXIMAB [Suspect]
     Dosage: 700 MG, UNK
     Route: 042
     Dates: start: 20110428
  12. G-CSF [Suspect]
     Indication: DIFFUSE LARGE B-CELL LYMPHOMA
     Dosage: 6 MG, UNK
     Route: 058
     Dates: start: 20110406

REACTIONS (4)
  - DEHYDRATION [None]
  - DIARRHOEA [None]
  - PARESIS [None]
  - FEBRILE NEUTROPENIA [None]
